FAERS Safety Report 8556522-5 (Version None)
Quarter: 2012Q2

REPORT INFORMATION
  Report Type: 
  Country: None (occurrence: None)
  Receive Date: 20120418
  Receipt Date: 20101118
  Transmission Date: 20120825
  Serious: Yes (Other)
  Sender: FDA-Public Use
  Company Number: PHHY2010US78946

PATIENT

DRUGS (3)
  1. DIOVAN [Suspect]
  2. CLONIDINE [Concomitant]
  3. COREG [Concomitant]

REACTIONS (1)
  - PALPITATIONS [None]
